FAERS Safety Report 18773877 (Version 1)
Quarter: 2021Q1

REPORT INFORMATION
  Report Type: Spontaneous
  Country: US (occurrence: US)
  Receive Date: 20210122
  Receipt Date: 20210122
  Transmission Date: 20210419
  Serious: No
  Sender: FDA-Public Use
  Company Number: None

PATIENT

DRUGS (2)
  1. MULE PORT IV DEVICE USED BY ANESTHESIA IN OR [Suspect]
     Active Substance: DEVICE
  2. LEVOPHED [Suspect]
     Active Substance: NOREPINEPHRINE BITARTRATE

REACTIONS (2)
  - Hypotension [None]
  - Device breakage [None]

NARRATIVE: CASE EVENT DATE: 20201203
